FAERS Safety Report 24169839 (Version 1)
Quarter: 2024Q3

REPORT INFORMATION
  Report Type: Spontaneous
  Country: CN (occurrence: CN)
  Receive Date: 20240803
  Receipt Date: 20240803
  Transmission Date: 20241017
  Serious: Yes (Other)
  Sender: BAXTER
  Company Number: None

PATIENT
  Age: 67 Year
  Sex: Female
  Weight: 62.5 kg

DRUGS (7)
  1. CYCLOPHOSPHAMIDE [Suspect]
     Active Substance: CYCLOPHOSPHAMIDE
     Indication: Chemotherapy
     Dosage: 970 MG, ONE TIME IN 21 DAYS, DILUTED WITH 0.9% SODIUM CHLORIDE (NS) 500 ML, AS A PART OF TCH REGIMEN
     Route: 041
     Dates: start: 20240702, end: 20240722
  2. CYCLOPHOSPHAMIDE [Suspect]
     Active Substance: CYCLOPHOSPHAMIDE
     Indication: Breast cancer female
  3. SODIUM CHLORIDE [Suspect]
     Active Substance: SODIUM CHLORIDE
     Indication: Medication dilution
     Dosage: 500 ML, ONE TIME IN 21 DAYS, USED TO DILUTE CYCLOPHOSPHAMIDE 970 MG
     Route: 041
     Dates: start: 20240702, end: 20240722
  4. DOCETAXEL [Suspect]
     Active Substance: DOCETAXEL\DOCETAXEL ANHYDROUS
     Indication: Chemotherapy
     Dosage: 120 MG, ONE TIME IN 21 DAYS, DILUTED WITH 0.9% 500 ML (DRUG NOT SPECIFIED), AS PART OF TCH REGIMEN,
     Route: 041
     Dates: start: 20240702, end: 20240722
  5. DOCETAXEL [Suspect]
     Active Substance: DOCETAXEL\DOCETAXEL ANHYDROUS
     Indication: Breast cancer female
  6. TRASTUZUMAB [Suspect]
     Active Substance: TRASTUZUMAB
     Indication: Chemotherapy
     Dosage: 600 MG, ONE TIME IN 21 DAYS, AS PART OF TCH REGIMEN, FIRST AND SECOND CHEMOTHERAPY
     Route: 058
     Dates: start: 20240702, end: 20240722
  7. TRASTUZUMAB [Suspect]
     Active Substance: TRASTUZUMAB
     Indication: Breast cancer female

REACTIONS (4)
  - Interstitial lung abnormality [Unknown]
  - White blood cell count decreased [Recovered/Resolved]
  - Nausea [Recovered/Resolved]
  - Vomiting [Recovered/Resolved]

NARRATIVE: CASE EVENT DATE: 20240710
